FAERS Safety Report 8422008-1 (Version None)
Quarter: 2012Q2

REPORT INFORMATION
  Report Type: 
  Country: None (occurrence: None)
  Receive Date: 20120323
  Receipt Date: 20110210
  Transmission Date: 20120825
  Serious: Yes (Life-Threatening, Other)
  Sender: FDA-Public Use
  Company Number: 163-21880-11021518

PATIENT
  Age: 61 Year
  Sex: Male
  Weight: 90 kg

DRUGS (28)
  1. ACETAMINOPHEN [Concomitant]
  2. COUMADIN [Concomitant]
  3. NIFEDIPINE [Concomitant]
  4. PHENERGAN HCL [Concomitant]
  5. AGGRENOX [Concomitant]
  6. CLONIDINE [Concomitant]
  7. NEXIUM [Concomitant]
  8. TIMOLOL MALEATE [Concomitant]
  9. VITAMIN D [Concomitant]
  10. CARAFATE [Concomitant]
  11. COLACE (DOCUSATE SODIUM) [Concomitant]
  12. DIOVAN [Concomitant]
  13. HYDRAZALINE (HYDRAZALINE) [Concomitant]
  14. LEVEMIR [Concomitant]
  15. POLY IRON (ALL OTHER THERAPEUTIC PRODUCTS) [Concomitant]
  16. STRESS B/ZINC (COMBEVIT) [Concomitant]
  17. TRAVATAN [Concomitant]
  18. HUMALOG [Concomitant]
  19. LORTAB [Concomitant]
  20. ASCORBIC ACID [Concomitant]
  21. PROCRIT [Concomitant]
  22. ALLOPURINOL [Concomitant]
  23. KLOR-CON [Concomitant]
  24. REVLIMID [Suspect]
     Indication: MULTIPLE MYELOMA
     Dosage: 25 MG, DAILY X 21 DAYS, PO, 15 MG, DAILY X 21 DAYS, PO, 10 MG, 1 IN 1 D, PO
     Route: 048
     Dates: start: 20100301
  25. REVLIMID [Suspect]
     Indication: MULTIPLE MYELOMA
     Dosage: 25 MG, DAILY X 21 DAYS, PO, 15 MG, DAILY X 21 DAYS, PO, 10 MG, 1 IN 1 D, PO
     Route: 048
     Dates: start: 20110201
  26. REVLIMID [Suspect]
     Indication: MULTIPLE MYELOMA
     Dosage: 25 MG, DAILY X 21 DAYS, PO, 15 MG, DAILY X 21 DAYS, PO, 10 MG, 1 IN 1 D, PO
     Route: 048
     Dates: start: 20100601
  27. GABAPENTIN [Concomitant]
  28. LABETELOL (LABETALOL) [Concomitant]

REACTIONS (1)
  - THROMBOSIS [None]
